FAERS Safety Report 6327777-2 (Version None)
Quarter: 2009Q3

REPORT INFORMATION
  Report Type: 
  Country: None (occurrence: None)
  Receive Date: 20090825
  Receipt Date: 20090820
  Transmission Date: 20100115
  Serious: Yes (Other)
  Sender: FDA-Public Use
  Company Number: GB-MERCK-0808GBR00068

PATIENT
  Age: 64 Year
  Sex: Female

DRUGS (3)
  1. ALENDRONATE SODIUM [Suspect]
     Indication: BONE DENSITY DECREASED
     Route: 048
     Dates: start: 20060101, end: 20080101
  2. ALENDRONATE SODIUM [Suspect]
     Indication: IMPACTED FRACTURE
     Route: 048
     Dates: start: 20060101, end: 20080101
  3. FOSAMAX [Suspect]
     Indication: BONE DENSITY DECREASED
     Route: 048
     Dates: start: 20050201, end: 20070701

REACTIONS (3)
  - DYSPEPSIA [None]
  - MALAISE [None]
  - THERAPEUTIC RESPONSE UNEXPECTED WITH DRUG SUBSTITUTION [None]
